FAERS Safety Report 8919338 (Version 1)
Quarter: 2012Q4

REPORT INFORMATION
  Report Type: 
  Country: US (occurrence: US)
  Receive Date: 20121121
  Receipt Date: 20121121
  Transmission Date: 20130627
  Serious: Yes (Other)
  Sender: FDA-Public Use
  Company Number: US-GLAXOSMITHKLINE-A0987429A

PATIENT
  Age: 64 Year
  Sex: Male
  Weight: 92.1 kg

DRUGS (10)
  1. ARZERRA [Suspect]
     Indication: CHRONIC LYMPHOCYTIC LEUKAEMIA
     Dosage: 300ML Single dose
     Route: 042
     Dates: start: 20120723
  2. ALLOPURINOL [Concomitant]
     Route: 048
     Dates: start: 20120626
  3. DIGOXIN [Concomitant]
     Route: 048
     Dates: start: 20120717
  4. FUROSEMIDE [Concomitant]
     Route: 048
  5. METOPROLOL [Concomitant]
     Route: 048
     Dates: start: 20120702
  6. SIMVASTATIN [Concomitant]
     Route: 048
     Dates: start: 20120113
  7. TAMSULOSIN [Concomitant]
     Route: 048
     Dates: start: 20120113
  8. GLIPIZIDE [Concomitant]
     Route: 048
     Dates: start: 20120205
  9. SPIRONOLACTONE [Concomitant]
     Route: 048
     Dates: start: 20120712
  10. BACTRIM DS [Concomitant]

REACTIONS (3)
  - Infusion related reaction [Recovered/Resolved]
  - Dyspnoea [Recovered/Resolved]
  - No therapeutic response [Unknown]
